FAERS Safety Report 11984009 (Version 1)
Quarter: 2016Q1

REPORT INFORMATION
  Report Type: Spontaneous
  Country: US (occurrence: US)
  Receive Date: 20160201
  Receipt Date: 20160201
  Transmission Date: 20160526
  Serious: No
  Sender: FDA-Public Use
  Company Number: US-DSJP-DSU-2015-134779

PATIENT
  Sex: Female
  Weight: 58.96 kg

DRUGS (6)
  1. SAVAYSA [Suspect]
     Active Substance: EDOXABAN TOSYLATE
     Dosage: 30 MG, BID
     Route: 048
     Dates: start: 20150721, end: 20150925
  2. BABY ASPIRIN [Concomitant]
     Active Substance: ASPIRIN
     Indication: ATRIAL FIBRILLATION
     Dosage: 81 MG, QD
     Dates: start: 201507, end: 201507
  3. ELIQUIS [Concomitant]
     Active Substance: APIXABAN
     Indication: ATRIAL FIBRILLATION
     Dosage: 5 MG, BID
     Route: 048
     Dates: start: 201505, end: 2015
  4. PROPRANOLOL [Concomitant]
     Active Substance: PROPRANOLOL\PROPRANOLOL HYDROCHLORIDE
     Indication: PALPITATIONS
     Dosage: 10 MG, PRN
     Route: 048
  5. SAVAYSA [Suspect]
     Active Substance: EDOXABAN TOSYLATE
     Indication: ATRIAL FIBRILLATION
     Dosage: 60 MG, QD
     Route: 048
     Dates: start: 20150702, end: 20150708
  6. DIAZEPAM. [Concomitant]
     Active Substance: DIAZEPAM
     Indication: SLEEP DISORDER
     Dosage: 1.25 MG, PRN
     Route: 048

REACTIONS (8)
  - Adverse event [Unknown]
  - Hypertension [Unknown]
  - Heart rate increased [Unknown]
  - Back pain [Unknown]
  - Myalgia [Unknown]
  - Incorrect dose administered [Recovered/Resolved]
  - Polyuria [Unknown]
  - Decreased appetite [Unknown]

NARRATIVE: CASE EVENT DATE: 2015
